APPROVED DRUG PRODUCT: DECITABINE
Active Ingredient: DECITABINE
Strength: 50MG/VIAL
Dosage Form/Route: INJECTABLE;INTRAVENOUS
Application: A203475 | Product #001 | TE Code: AP
Applicant: ACCORD HEALTHCARE INC
Approved: Feb 27, 2017 | RLD: No | RS: No | Type: RX